FAERS Safety Report 12084856 (Version 3)
Quarter: 2017Q1

REPORT INFORMATION
  Report Type: Spontaneous
  Country: PE (occurrence: PE)
  Receive Date: 20160217
  Receipt Date: 20170316
  Transmission Date: 20170428
  Serious: Yes (Hospitalization, Disabling, Other)
  Sender: FDA-Public Use
  Company Number: PE-DSJP-DSU-2016-105541

PATIENT

DRUGS (1)
  1. OLMETEC PLUS 40/12.5 [Suspect]
     Active Substance: HYDROCHLOROTHIAZIDE\OLMESARTAN MEDOXOMIL
     Indication: HYPERTENSION
     Dosage: 1/2 (40/12.5 MG TABLET), QD (IN THE MORNING)
     Route: 048
     Dates: start: 2008

REACTIONS (8)
  - Colon cancer [Recovering/Resolving]
  - Femur fracture [Recovered/Resolved]
  - Fall [Unknown]
  - Arthralgia [Not Recovered/Not Resolved]
  - Drug administration error [Not Recovered/Not Resolved]
  - Osteoporosis [Unknown]
  - Joint swelling [Not Recovered/Not Resolved]
  - Osteoarthritis [Unknown]

NARRATIVE: CASE EVENT DATE: 2008
